FAERS Safety Report 23079575 (Version 2)
Quarter: 2023Q4

REPORT INFORMATION
  Report Type: Spontaneous
  Country: HU (occurrence: HU)
  Receive Date: 20231018
  Receipt Date: 20231110
  Transmission Date: 20240109
  Serious: Yes (Hospitalization, Other)
  Sender: FDA-Public Use
  Company Number: HU-AMGEN-HUNSP2023171924

PATIENT
  Age: 44 Year
  Sex: Male

DRUGS (3)
  1. ADALIMUMAB [Suspect]
     Active Substance: ADALIMUMAB\ISOPROPYL ALCOHOL
     Indication: Ankylosing spondylitis
     Dosage: UNK,(DOSAGE 1; NO UNIT)
     Route: 058
  2. ADALIMUMAB [Suspect]
     Active Substance: ADALIMUMAB\ISOPROPYL ALCOHOL
     Dosage: UNK,(RESTART)
     Route: 058
  3. PFIZER-BIONTECH COVID-19 VACCINE [Concomitant]
     Active Substance: TOZINAMERAN
     Indication: COVID-19 immunisation
     Dosage: UNK
     Route: 030
     Dates: start: 202108

REACTIONS (7)
  - Crohn^s disease [Unknown]
  - Ileus [Unknown]
  - Intestinal perforation [Unknown]
  - Disseminated tuberculosis [Unknown]
  - Mobility decreased [Unknown]
  - Arthralgia [Unknown]
  - Drug ineffective [Unknown]
